FAERS Safety Report 15919127 (Version 1)
Quarter: 2019Q1

REPORT INFORMATION
  Report Type: Spontaneous
  Country: US (occurrence: US)
  Receive Date: 20190205
  Receipt Date: 20190205
  Transmission Date: 20190417
  Serious: No
  Sender: FDA-Public Use
  Company Number: US-ROCHE-2059471

PATIENT
  Age: 13 Year
  Sex: Female
  Weight: 60 kg

DRUGS (4)
  1. XOLAIR [Suspect]
     Active Substance: OMALIZUMAB
     Indication: SEASONAL ALLERGY
     Route: 058
  2. LORATADINE. [Concomitant]
     Active Substance: LORATADINE
  3. XOLAIR [Suspect]
     Active Substance: OMALIZUMAB
     Route: 058
  4. GENOTROPIN [Concomitant]
     Active Substance: SOMATROPIN

REACTIONS (3)
  - Wheezing [Recovered/Resolved]
  - Sneezing [Recovered/Resolved]
  - Cough [Not Recovered/Not Resolved]

NARRATIVE: CASE EVENT DATE: 20180117
